FAERS Safety Report 8198103-1 (Version None)
Quarter: 2012Q1

REPORT INFORMATION
  Report Type: 
  Country: None (occurrence: None)
  Receive Date: 20120309
  Receipt Date: 20120117
  Transmission Date: 20120608
  Serious: No
  Sender: FDA-Public Use
  Company Number: US-AMGEN-USASP2012003427

PATIENT
  Age: 60 Year
  Sex: Male

DRUGS (2)
  1. TRELSTAR [Concomitant]
  2. XGEVA [Suspect]
     Indication: METASTASES TO BONE
     Dosage: UNK UNK, Q4WK
     Dates: start: 20111201

REACTIONS (5)
  - DYSPEPSIA [None]
  - DYSPHAGIA [None]
  - COUGH [None]
  - HICCUPS [None]
  - ABDOMINAL DISCOMFORT [None]
